FAERS Safety Report 22604993 (Version 1)
Quarter: 2023Q2

REPORT INFORMATION
  Report Type: Spontaneous
  Country: GB (occurrence: GB)
  Receive Date: 20230615
  Receipt Date: 20230615
  Transmission Date: 20230721
  Serious: Yes (Hospitalization, Other)
  Sender: FDA-Public Use
  Company Number: GB-PFIZER INC-202300219041

PATIENT
  Age: 36 Year
  Sex: Female

DRUGS (8)
  1. DOXORUBICIN [Suspect]
     Active Substance: DOXORUBICIN
     Indication: Hodgkin^s disease nodular sclerosis
     Dosage: UNK, CYCLIC, 4 CYCLES
     Dates: start: 1999
  2. VINCRISTINE SULFATE [Suspect]
     Active Substance: VINCRISTINE SULFATE
     Indication: Hodgkin^s disease nodular sclerosis
     Dosage: UNK, CYCLIC, 4 CYCLES
     Dates: start: 1999
  3. PREDNISOLONE [Suspect]
     Active Substance: PREDNISOLONE
     Indication: Hodgkin^s disease nodular sclerosis
     Dosage: UNK, CYCLIC, 4 CYCLES
     Dates: start: 1999
  4. VINBLASTINE [Suspect]
     Active Substance: VINBLASTINE
     Indication: Hodgkin^s disease nodular sclerosis
     Dosage: UNK, CYCLIC, 4 CYCLES
     Dates: start: 1999
  5. BLEOMYCIN SULFATE [Suspect]
     Active Substance: BLEOMYCIN SULFATE
     Indication: Hodgkin^s disease nodular sclerosis
     Dosage: UNK, CYCLIC, 4 CYCLES
     Dates: start: 1999
  6. CHLORAMBUCIL [Suspect]
     Active Substance: CHLORAMBUCIL
     Indication: Hodgkin^s disease nodular sclerosis
     Dosage: UNK, CYCLIC, 4 CYCLES
     Dates: start: 1999
  7. PROCARBAZINE [Suspect]
     Active Substance: PROCARBAZINE
     Indication: Hodgkin^s disease nodular sclerosis
     Dosage: UNK, CYCLIC, 4 CYCLES
     Dates: start: 1999
  8. ETOPOSIDE [Suspect]
     Active Substance: ETOPOSIDE
     Indication: Hodgkin^s disease nodular sclerosis
     Dosage: UNK, CYCLIC, 4 CYCLES
     Dates: start: 1999

REACTIONS (7)
  - Pasteurella infection [Unknown]
  - Bacteraemia [Unknown]
  - Cellulitis [Recovered/Resolved]
  - Neutropenia [Unknown]
  - Blister [Recovered/Resolved]
  - Pyrexia [Recovered/Resolved]
  - Pancytopenia [Unknown]
